FAERS Safety Report 13126619 (Version 2)
Quarter: 2017Q1

REPORT INFORMATION
  Report Type: Spontaneous
  Country: JP (occurrence: JP)
  Receive Date: 20170118
  Receipt Date: 20170124
  Transmission Date: 20170428
  Serious: Yes (Death, Hospitalization)
  Sender: FDA-Public Use
  Company Number: JP-BAYER-2017-006623

PATIENT
  Age: 54 Year
  Sex: Male

DRUGS (1)
  1. NEXAVAR [Suspect]
     Active Substance: SORAFENIB
     Indication: HEPATOCELLULAR CARCINOMA
     Dosage: UNK
     Route: 048
     Dates: start: 2015

REACTIONS (5)
  - Intestinal varices haemorrhage [Recovered/Resolved]
  - Hepatocellular carcinoma [Fatal]
  - Haematochezia [None]
  - Blood pressure decreased [None]
  - Haemoglobin decreased [None]

NARRATIVE: CASE EVENT DATE: 2016
